FAERS Safety Report 20186457 (Version 1)
Quarter: 2021Q4

REPORT INFORMATION
  Report Type: Spontaneous
  Country: US (occurrence: US)
  Receive Date: 20211215
  Receipt Date: 20211215
  Transmission Date: 20220303
  Serious: No
  Sender: FDA-Public Use
  Company Number: US-RECKITT BENCKISER HEALTHCARE INT LIMITED-RB-90026-2021

PATIENT
  Age: 78 Year
  Sex: Female

DRUGS (1)
  1. DELSYM COUGH PLUS COLD NIGHT TIME [Suspect]
     Active Substance: ACETAMINOPHEN\DIPHENHYDRAMINE HYDROCHLORIDE\PHENYLEPHRINE HYDROCHLORIDE
     Indication: Product used for unknown indication
     Dosage: 10 MILLILITER
     Route: 065
     Dates: start: 20210526

REACTIONS (1)
  - Feeling jittery [Recovering/Resolving]
